FAERS Safety Report 6258584-7 (Version None)
Quarter: 2009Q3

REPORT INFORMATION
  Report Type: 
  Country: None (occurrence: None)
  Receive Date: 20090707
  Receipt Date: 20090624
  Transmission Date: 20100115
  Serious: Yes (Hospitalization)
  Sender: FDA-Public Use
  Company Number: ES-GENENTECH-285867

PATIENT
  Age: 50 Year
  Sex: Male

DRUGS (6)
  1. AVASTIN [Suspect]
     Indication: COLORECTAL CANCER METASTATIC
     Dosage: 262 MG, UNK
     Route: 042
     Dates: start: 20090223
  2. ELOXATIN [Suspect]
     Indication: COLORECTAL CANCER METASTATIC
     Dosage: 125 MG, UNK
     Route: 042
     Dates: start: 20090223
  3. FLUOROURACIL [Suspect]
     Indication: COLORECTAL CANCER METASTATIC
     Dosage: 1.5 G, UNK
     Route: 042
     Dates: start: 20090223
  4. CALCIUM FOLINATE [Concomitant]
     Indication: COLORECTAL CANCER METASTATIC
     Dosage: UNK
     Dates: start: 20090223
  5. FORTECORTIN [Concomitant]
     Indication: VOMITING
     Dosage: UNK
     Dates: start: 20090223
  6. KYTRIL [Concomitant]
     Indication: VOMITING
     Dosage: UNK
     Dates: start: 20090223

REACTIONS (7)
  - CEREBRAL HAEMATOMA [None]
  - COUGH [None]
  - DYSPNOEA [None]
  - FACE OEDEMA [None]
  - HYPERTENSION [None]
  - OEDEMA PERIPHERAL [None]
  - SUBARACHNOID HAEMORRHAGE [None]
